FAERS Safety Report 7550831-4 (Version None)
Quarter: 2011Q2

REPORT INFORMATION
  Report Type: 
  Country: None (occurrence: None)
  Receive Date: 20110616
  Receipt Date: 20110126
  Transmission Date: 20111010
  Serious: Yes (Other)
  Sender: FDA-Public Use
  Company Number: US-BAYER-201022294NA

PATIENT
  Age: 20 Year
  Sex: Female
  Weight: 59.864 kg

DRUGS (9)
  1. VIRAL VACCINES [Concomitant]
     Indication: PRODUCT USED FOR UNKNOWN INDICATION
     Route: 030
     Dates: start: 20080128, end: 20080128
  2. YAZ [Suspect]
     Indication: ACNE
  3. M.V.I. [Concomitant]
     Indication: PRODUCT USED FOR UNKNOWN INDICATION
     Route: 048
  4. IMITREX [Concomitant]
     Indication: MIGRAINE
     Dosage: UNK UNK, QD
     Route: 048
     Dates: start: 20080320
  5. YAZ [Suspect]
     Indication: PREMENSTRUAL SYNDROME
  6. CELEXA [Concomitant]
     Indication: PRODUCT USED FOR UNKNOWN INDICATION
     Dosage: DAILY DOSE 20 MG
     Route: 048
     Dates: start: 20080910
  7. RELPAX [Concomitant]
     Indication: PRODUCT USED FOR UNKNOWN INDICATION
     Dosage: UNK
     Route: 048
  8. YAZ [Suspect]
     Indication: CONTRACEPTION
     Dosage: UNK UNK, QD
     Route: 048
     Dates: start: 20070901, end: 20100201
  9. ORTHO TRI-CYCLEN [Concomitant]
     Indication: PRODUCT USED FOR UNKNOWN INDICATION
     Dosage: UNK
     Dates: start: 20050901, end: 20070901

REACTIONS (7)
  - BILIARY DYSKINESIA [None]
  - DIARRHOEA [None]
  - ERUCTATION [None]
  - ABDOMINAL PAIN UPPER [None]
  - NAUSEA [None]
  - CONSTIPATION [None]
  - ABDOMINAL PAIN [None]
